FAERS Safety Report 25418562 (Version 1)
Quarter: 2025Q2

REPORT INFORMATION
  Report Type: Spontaneous
  Country: US (occurrence: None)
  Receive Date: 20250604
  Receipt Date: 20250604
  Transmission Date: 20250717
  Serious: No
  Sender: FDA-CTU
  Company Number: None

PATIENT
  Age: 45 Year
  Sex: Female

DRUGS (1)
  1. ADALIMUMAB-ADBM [Suspect]
     Active Substance: ADALIMUMAB-ADBM

REACTIONS (1)
  - Diarrhoea [None]
